FAERS Safety Report 18539297 (Version 1)
Quarter: 2020Q4

REPORT INFORMATION
  Report Type: Spontaneous
  Country: UY (occurrence: UY)
  Receive Date: 20201124
  Receipt Date: 20201124
  Transmission Date: 20210114
  Serious: Yes (Death, Hospitalization, Other)
  Sender: FDA-Public Use
  Company Number: UY-AMGEN-URYSP2020189045

PATIENT
  Age: 13 Year
  Sex: Female

DRUGS (8)
  1. FLUDARABINE [Concomitant]
     Active Substance: FLUDARABINE PHOSPHATE
  2. ACYCLOVIR SODIUM. [Concomitant]
     Active Substance: ACYCLOVIR SODIUM
  3. FLUCONAZOLE. [Concomitant]
     Active Substance: FLUCONAZOLE
  4. VANCOMYCIN [Concomitant]
     Active Substance: VANCOMYCIN
     Dosage: 40MG/KG/DAY
  5. BUSULFAN. [Concomitant]
     Active Substance: BUSULFAN
  6. SULFAMETHOXAZOLE;TRIMETHOPRIM [Concomitant]
     Active Substance: SULFAMETHOXAZOLE\TRIMETHOPRIM
  7. MEROPENEM. [Concomitant]
     Active Substance: MEROPENEM
     Dosage: 60MG/KG/DAY
  8. NEUPOGEN [Suspect]
     Active Substance: FILGRASTIM
     Indication: PROPHYLAXIS
     Dosage: 300 MICROGRAM/KG/ DAY
     Route: 065

REACTIONS (13)
  - Death [Fatal]
  - Fusarium infection [Unknown]
  - White blood cell disorder [Unknown]
  - Brain herniation [Unknown]
  - Brain oedema [Unknown]
  - Hypernatraemia [Unknown]
  - Cerebral ischaemia [Unknown]
  - Diabetes insipidus [Unknown]
  - Spinal cord compression [Unknown]
  - Dermatosis [Unknown]
  - Acantholysis [Unknown]
  - Thrombosis [Unknown]
  - Haemoglobin decreased [Unknown]
